FAERS Safety Report 22347537 (Version 1)
Quarter: 2023Q2

REPORT INFORMATION
  Report Type: Spontaneous
  Country: CN (occurrence: None)
  Receive Date: 20230521
  Receipt Date: 20230521
  Transmission Date: 20230722
  Serious: Yes (Other)
  Sender: FDA-Public Use
  Company Number: CN-ROCHE-3350781

PATIENT
  Age: 48 Year
  Sex: Male

DRUGS (16)
  1. CAPECITABINE [Suspect]
     Active Substance: CAPECITABINE
     Indication: Adenocarcinoma of colon
     Dosage: XELOX FOR 8 CYCLES
     Route: 065
     Dates: start: 2020
  2. CAPECITABINE [Suspect]
     Active Substance: CAPECITABINE
     Route: 065
     Dates: start: 20211021, end: 20220213
  3. BEVACIZUMAB [Suspect]
     Active Substance: BEVACIZUMAB
     Indication: Adenocarcinoma of colon
     Dosage: 17-AUG-2021 TO 30-SEP-2021, 02-MAR-2022 TO 31-MAR-2022
     Route: 065
     Dates: start: 20220630, end: 20220630
  4. BEVACIZUMAB [Suspect]
     Active Substance: BEVACIZUMAB
     Route: 065
     Dates: start: 20220816, end: 20221008
  5. OXALIPLATIN [Suspect]
     Active Substance: OXALIPLATIN
     Indication: Adenocarcinoma of colon
     Dosage: XELOX FOR 8 CYCLES, 17-AUG-2021 TO 30-SEP-2021, 02-MAR-2022 TO 31-MAR-2022
     Route: 065
     Dates: start: 20220414
  6. OXALIPLATIN [Suspect]
     Active Substance: OXALIPLATIN
     Route: 065
     Dates: start: 20220630, end: 20220630
  7. FLUOROURACIL [Concomitant]
     Active Substance: FLUOROURACIL
     Dosage: 17-AUG-2021 TO 30-SEP-2021, 02-MAR-2022 TO 31-MAR-2022
     Dates: start: 20220414
  8. FLUOROURACIL [Concomitant]
     Active Substance: FLUOROURACIL
     Dates: start: 20220630, end: 20220730
  9. FLUOROURACIL [Concomitant]
     Active Substance: FLUOROURACIL
     Dates: start: 20220816, end: 20221008
  10. LEUCOVORIN CALCIUM [Concomitant]
     Active Substance: LEUCOVORIN CALCIUM
     Dosage: 17-AUG-2021 TO 30-SEP-2021, 02-MAR-2022 TO 31-MAR-2022
  11. LEUCOVORIN CALCIUM [Concomitant]
     Active Substance: LEUCOVORIN CALCIUM
     Dates: start: 20220414
  12. LEUCOVORIN CALCIUM [Concomitant]
     Active Substance: LEUCOVORIN CALCIUM
     Dates: start: 20220630, end: 20220630
  13. LEUCOVORIN CALCIUM [Concomitant]
     Active Substance: LEUCOVORIN CALCIUM
     Dates: start: 20220816, end: 20221008
  14. IRINOTECAN [Concomitant]
     Active Substance: IRINOTECAN
     Dosage: 17-AUG-2021 TO 30-SEP-2021, 02-MAR-2022 TO 31-MAR-2022
     Dates: start: 20230414
  15. IRINOTECAN [Concomitant]
     Active Substance: IRINOTECAN
     Dates: start: 20220816, end: 20221008
  16. FRUQUINTINIB [Concomitant]
     Active Substance: FRUQUINTINIB
     Route: 048
     Dates: start: 202212

REACTIONS (2)
  - Drug hypersensitivity [Unknown]
  - Jaundice cholestatic [Recovering/Resolving]

NARRATIVE: CASE EVENT DATE: 20220101
